FAERS Safety Report 10706024 (Version 2)
Quarter: 2015Q1

REPORT INFORMATION
  Report Type: Spontaneous
  Country: HU (occurrence: HU)
  Receive Date: 20150113
  Receipt Date: 20150113
  Transmission Date: 20150721
  Serious: Yes (Hospitalization, Other)
  Sender: FDA-Public Use
  Company Number: HU-PFIZER INC-2014324731

PATIENT
  Age: 76 Year
  Sex: Female
  Weight: 64 kg

DRUGS (3)
  1. CAVINTON [Concomitant]
     Active Substance: VINPOCETINE
     Dosage: UNK
  2. CARDURA XL [Suspect]
     Active Substance: DOXAZOSIN MESYLATE
     Indication: HYPERTENSION
     Dosage: UNK
  3. ASPIRIN PROTECT [Concomitant]
     Active Substance: ASPIRIN
     Dosage: UNK

REACTIONS (10)
  - Blood pressure increased [Unknown]
  - Peripheral swelling [Unknown]
  - Headache [Unknown]
  - Thirst [Unknown]
  - Dizziness [Unknown]
  - Drug ineffective [Unknown]
  - Eye disorder [Unknown]
  - Malaise [Unknown]
  - Diplopia [Unknown]
  - Dry eye [Unknown]

NARRATIVE: CASE EVENT DATE: 20141124
